FAERS Safety Report 17195807 (Version 1)
Quarter: 2019Q4

REPORT INFORMATION
  Report Type: Spontaneous
  Country: US (occurrence: US)
  Receive Date: 20191224
  Receipt Date: 20191224
  Transmission Date: 20200122
  Serious: No
  Sender: FDA-Public Use
  Company Number: US-ELI_LILLY_AND_COMPANY-US201912006427

PATIENT
  Sex: Female

DRUGS (2)
  1. DULOXETINA APOTEX CAPSULAS DURAS GASTRORRESISTENTES EFG [Suspect]
     Active Substance: DULOXETINE
     Indication: DEPRESSION
     Dosage: UNK, UNKNOWN
     Route: 065
  2. CYMBALTA [Suspect]
     Active Substance: DULOXETINE HYDROCHLORIDE
     Indication: DEPRESSION
     Dosage: UNK, UNKNOWN
     Route: 065

REACTIONS (5)
  - Thinking abnormal [Unknown]
  - Weight increased [Unknown]
  - Withdrawal syndrome [Unknown]
  - Anxiety [Unknown]
  - Insomnia [Unknown]
